FAERS Safety Report 24804908 (Version 2)
Quarter: 2025Q1

REPORT INFORMATION
  Report Type: Spontaneous
  Country: US (occurrence: US)
  Receive Date: 20250103
  Receipt Date: 20250109
  Transmission Date: 20250409
  Serious: Yes (Other)
  Sender: PFIZER
  Company Number: US-PFIZER INC-PV202400169808

PATIENT
  Age: 36 Year
  Sex: Male

DRUGS (2)
  1. FLUCONAZOLE [Suspect]
     Active Substance: FLUCONAZOLE
  2. GANCICLOVIR [Suspect]
     Active Substance: GANCICLOVIR

REACTIONS (1)
  - Pancytopenia [Unknown]
